FAERS Safety Report 5907819-6 (Version None)
Quarter: 2008Q4

REPORT INFORMATION
  Report Type: 
  Country: None (occurrence: None)
  Receive Date: 20081003
  Receipt Date: 20080930
  Transmission Date: 20090506
  Serious: Yes (Other)
  Sender: FDA-Public Use
  Company Number: US-ALLERGAN-0812204US

PATIENT
  Sex: Male

DRUGS (4)
  1. COMBIGAN [Suspect]
     Indication: GLAUCOMA
     Dosage: 1 GTT, SINGLE
     Route: 047
  2. LUMIGAN [Concomitant]
     Indication: GLAUCOMA
  3. TIMOLOL MALEATE SOLUTION UNSPECIFIED [Concomitant]
     Indication: GLAUCOMA
  4. LOSARTAN [Concomitant]
     Indication: HYPERTENSION
     Dosage: 50 MG, QD
     Route: 048

REACTIONS (1)
  - HYPOTENSION [None]
